FAERS Safety Report 23635550 (Version 1)
Quarter: 2024Q1

REPORT INFORMATION
  Report Type: Spontaneous
  Country: US (occurrence: US)
  Receive Date: 20240315
  Receipt Date: 20240315
  Transmission Date: 20240409
  Serious: No
  Sender: FDA-Public Use
  Company Number: US-JNJFOC-20240339256

PATIENT
  Age: 56 Year
  Sex: Female
  Weight: 54.4 kg

DRUGS (15)
  1. MACITENTAN [Suspect]
     Active Substance: MACITENTAN
     Indication: Product used for unknown indication
     Route: 048
  2. REMODULIN [Suspect]
     Active Substance: TREPROSTINIL
     Indication: Pulmonary arterial hypertension
     Dosage: TREPROSTINIL SODIUM, CONCENTRATION 1 MG/ML, DELIVERED VIA REMUNITY (PATIENT FILLED) PUMP.  (SELF-FIL
     Route: 058
     Dates: start: 20240229
  3. VITAMIN D2 [Concomitant]
     Active Substance: ERGOCALCIFEROL
  4. CALCIUM [Concomitant]
     Active Substance: CALCIUM
  5. SODIUM CHLORIDE [Concomitant]
     Active Substance: SODIUM CHLORIDE
  6. KETAMINE HYDROCHLORIDE [Concomitant]
     Active Substance: KETAMINE HYDROCHLORIDE
  7. LECITHIN [GLYCINE MAX EXTRACT] [Concomitant]
  8. SILDENAFIL CITRATE [Concomitant]
     Active Substance: SILDENAFIL CITRATE
  9. CLONIDINE [Concomitant]
     Active Substance: CLONIDINE
  10. KETOPROFEN [Concomitant]
     Active Substance: KETOPROFEN
  11. LIDOCAINE HYDROCHLORIDE [Concomitant]
     Active Substance: LIDOCAINE HYDROCHLORIDE
  12. AMITRIPTYLINE [Concomitant]
     Active Substance: AMITRIPTYLINE
  13. GABAPENTIN [Concomitant]
     Active Substance: GABAPENTIN
  14. POLOXAMER [Concomitant]
     Active Substance: POLOXAMER
  15. ASPIRIN [Concomitant]
     Active Substance: ASPIRIN

REACTIONS (1)
  - Dermatitis contact [Unknown]
